FAERS Safety Report 6328132-1 (Version None)
Quarter: 2009Q3

REPORT INFORMATION
  Report Type: 
  Country: None (occurrence: None)
  Receive Date: 20090825
  Receipt Date: 20090114
  Transmission Date: 20100115
  Serious: No
  Sender: FDA-Public Use
  Company Number: US-ABBOTT-09P-163-0498190-00

PATIENT
  Sex: Female
  Weight: 68.1 kg

DRUGS (6)
  1. SYNTHROID [Suspect]
     Indication: HYPOTHYROIDISM
     Dates: start: 20090107
  2. SYNTHROID [Suspect]
     Dates: start: 20080101
  3. SYNTHROID [Suspect]
     Dates: start: 20070101, end: 20080101
  4. LEVOTHYROXINE SODIUM [Suspect]
     Indication: HYPOTHYROIDISM
     Dates: start: 20070101, end: 20070101
  5. LEVOTHYROXINE SODIUM [Suspect]
     Dates: end: 20080101
  6. DILTIAZEM [Concomitant]
     Indication: HYPERTENSION

REACTIONS (1)
  - ALOPECIA [None]
